FAERS Safety Report 5574678-3 (Version None)
Quarter: 2007Q4

REPORT INFORMATION
  Report Type: 
  Country: None (occurrence: None)
  Receive Date: 20071226
  Receipt Date: 20071226
  Transmission Date: 20080405
  Serious: Yes (Hospitalization)
  Sender: FDA-Public Use
  Company Number: None

PATIENT
  Age: 53 Year
  Sex: Male

DRUGS (3)
  1. NAPROXEN [Suspect]
     Indication: CARDIOVASCULAR DISORDER
     Dosage: 500MG TID PO
     Route: 048
     Dates: start: 20071020, end: 20071020
  2. NAPROXEN [Suspect]
     Indication: SURGERY
     Dosage: 500MG TID PO
     Route: 048
     Dates: start: 20071020, end: 20071020
  3. ASPIRIN [Suspect]
     Dosage: 81MG EVERY DAY PO
     Route: 048
     Dates: start: 20070606, end: 20071023

REACTIONS (1)
  - ANGIOEDEMA [None]
